FAERS Safety Report 23752428 (Version 3)
Quarter: 2024Q4

REPORT INFORMATION
  Report Type: Spontaneous
  Country: US (occurrence: US)
  Receive Date: 20240417
  Receipt Date: 20241011
  Transmission Date: 20250114
  Serious: No
  Sender: VERTEX
  Company Number: US-VERTEX PHARMACEUTICALS-2024-006341

PATIENT

DRUGS (1)
  1. TRIKAFTA [Suspect]
     Active Substance: ELEXACAFTOR\IVACAFTOR\TEZACAFTOR
     Indication: Cystic fibrosis
     Dosage: UNKNOWN DOSE
     Route: 048

REACTIONS (5)
  - Blood bilirubin increased [Recovering/Resolving]
  - Cholelithiasis [Not Recovered/Not Resolved]
  - Blepharospasm [Not Recovered/Not Resolved]
  - Back pain [Recovered/Resolved]
  - Productive cough [Unknown]
